FAERS Safety Report 23051179 (Version 2)
Quarter: 2023Q4

REPORT INFORMATION
  Report Type: Spontaneous
  Country: US (occurrence: US)
  Receive Date: 20231010
  Receipt Date: 20231019
  Transmission Date: 20240109
  Serious: Yes (Hospitalization)
  Sender: FDA-Public Use
  Company Number: US-SA-SAC20231006001341

PATIENT
  Age: 55 Year
  Sex: Female
  Weight: 65.31 kg

DRUGS (1)
  1. DUPIXENT [Suspect]
     Active Substance: DUPILUMAB
     Indication: Urticaria
     Dosage: 600 MG, 1X
     Route: 058
     Dates: start: 20231001, end: 20231001

REACTIONS (2)
  - Hospitalisation [Unknown]
  - Product use in unapproved indication [Unknown]

NARRATIVE: CASE EVENT DATE: 20230101
